FAERS Safety Report 9513766 (Version 1)
Quarter: 2013Q1

REPORT INFORMATION
  Report Type: Spontaneous
  Country: US (occurrence: None)
  Receive Date: 20130305
  Receipt Date: 20130305
  Transmission Date: 20140127
  Serious: Yes (Disabling)
  Sender: FDA-Public Use
  Company Number: 163-21880-12102298

PATIENT
  Age: 61 Year
  Sex: Female
  Weight: 63.5 kg

DRUGS (10)
  1. REVLIMID (LENALIDOMIDE) (25 MILLIGRAM, CAPSULES) [Suspect]
     Indication: PLASMA CELL MYELOMA
     Dosage: 25 MG, 1 IN 1 D, PO
     Route: 048
     Dates: start: 201110
  2. ACYCLOVIR (ACICLOVIR) (UNKNOWN) [Concomitant]
  3. ANASTROZOLE (ANASTROZOLE) (UNKNOWN) [Concomitant]
  4. CALCARB/D (CALCARB WITH VITAMIN D) (UNKNOWN)? [Concomitant]
  5. DIOVAN (VALSARTAN) (UNKNOWN) [Concomitant]
  6. NONI JUICE (ALL OTHER NON-THERAPEUTIC PRODUCTS) (UNKNOWN) [Concomitant]
  7. PRAVASTATIN (PRAVASTATIN) (UNKNOWN)? [Concomitant]
  8. SULFATRIM (BACTRIM) (UNKNOWN)? [Concomitant]
  9. VITAMIN D (ERGOCALCIFEROL) (UNKNOWN) [Concomitant]
  10. ZOMETA (ZOLEDRONIC ACID) (UNKNOWN) [Concomitant]

REACTIONS (3)
  - Fatigue [None]
  - Abdominal pain upper [None]
  - Frequent bowel movements [None]
